FAERS Safety Report 13582516 (Version 2)
Quarter: 2018Q1

REPORT INFORMATION
  Report Type: Spontaneous
  Country: US (occurrence: US)
  Receive Date: 20170525
  Receipt Date: 20180219
  Transmission Date: 20180508
  Serious: No
  Sender: FDA-Public Use
  Company Number: US-BIOGEN-2017BI00404554

PATIENT
  Sex: Male

DRUGS (2)
  1. TECFIDERA [Suspect]
     Active Substance: DIMETHYL FUMARATE
     Indication: MULTIPLE SCLEROSIS
     Route: 065
  2. TECFIDERA [Suspect]
     Active Substance: DIMETHYL FUMARATE
     Route: 065

REACTIONS (3)
  - Drug dose omission [Recovered/Resolved]
  - Stress [Not Recovered/Not Resolved]
  - Memory impairment [Not Recovered/Not Resolved]
